FAERS Safety Report 24377010 (Version 1)
Quarter: 2024Q3

REPORT INFORMATION
  Report Type: Report from Study
  Country: US (occurrence: US)
  Receive Date: 20240930
  Receipt Date: 20240930
  Transmission Date: 20241016
  Serious: Yes (Hospitalization, Other)
  Sender: ABBVIE
  Company Number: US-ABBVIE-5939899

PATIENT
  Age: 47 Year
  Sex: Female

DRUGS (3)
  1. SKYRIZI [Suspect]
     Active Substance: RISANKIZUMAB-RZAA
     Indication: Psoriasis
     Dosage: FORM STRENGTH 150MG/ML, WEEK 0
     Route: 058
     Dates: start: 20231203, end: 20231203
  2. SKYRIZI [Suspect]
     Active Substance: RISANKIZUMAB-RZAA
     Dosage: FORM STRENGTH 150MG/ML, WEEK 4
     Route: 058
     Dates: start: 202401, end: 202401
  3. SKYRIZI [Suspect]
     Active Substance: RISANKIZUMAB-RZAA
     Dosage: FORM STRENGTH 150MG/ML
     Route: 058
     Dates: start: 20240906

REACTIONS (1)
  - Gastric operation [Unknown]

NARRATIVE: CASE EVENT DATE: 20240510
